FAERS Safety Report 9146958 (Version 4)
Quarter: 2014Q2

REPORT INFORMATION
  Report Type: Spontaneous
  Country: JP (occurrence: None)
  Receive Date: 20130222
  Receipt Date: 20140623
  Transmission Date: 20141212
  Serious: Yes (Death)
  Sender: FDA-Public Use
  Company Number: SYM-2013-00724

PATIENT
  Age: 58 Year
  Sex: Male

DRUGS (11)
  1. HERBESSER [Suspect]
     Indication: HYPERTENSION
     Route: 048
     Dates: start: 20111017, end: 20111108
  2. URSO [Suspect]
     Indication: HEPATIC FUNCTION ABNORMAL
     Route: 048
     Dates: end: 20111108
  3. DAIKENTYUTO [Suspect]
     Indication: ABDOMINAL DISTENSION
     Route: 048
     Dates: end: 20111108
  4. ARTIST [Suspect]
     Indication: HYPERTENSION
     Route: 048
     Dates: end: 20111108
  5. PARIET [Suspect]
     Indication: GASTRIC ULCER
     Route: 048
     Dates: end: 20111108
  6. SUNRYTHM (PILSICAINIDE HYDROCHLORIDE) [Concomitant]
  7. MAINTATE (BISOPROLOL FUMARATE) [Concomitant]
  8. VASOLAN (VERAPAMIL HYDROCHLORIDE) [Concomitant]
  9. ANCARON (AMIODARONE HYDROCHLORIDE) [Concomitant]
  10. PRAZAXA (DABIGATRAN ETEXILATE MESILATE) [Concomitant]
  11. MAGLAX (MAGNESIUM OXIDE) [Concomitant]

REACTIONS (15)
  - Atrial fibrillation [None]
  - Cardiac hypertrophy [None]
  - Toxic epidermal necrolysis [None]
  - Blood pressure decreased [None]
  - Respiratory arrest [None]
  - Cardiac arrest [None]
  - Cardiac failure acute [None]
  - Renal failure acute [None]
  - Hepatic failure [None]
  - Shock [None]
  - Rash [None]
  - Rash pustular [None]
  - Face oedema [None]
  - Lymphadenopathy [None]
  - Multi-organ disorder [None]
